FAERS Safety Report 21839985 (Version 1)
Quarter: 2023Q1

REPORT INFORMATION
  Report Type: Report from Study
  Country: US (occurrence: US)
  Receive Date: 20230110
  Receipt Date: 20230110
  Transmission Date: 20230418
  Serious: No
  Sender: FDA-Public Use
  Company Number: US-ABBVIE-4263254

PATIENT
  Sex: Male

DRUGS (5)
  1. IMBRUVICA [Suspect]
     Active Substance: IBRUTINIB
     Indication: Chronic lymphocytic leukaemia
     Route: 048
     Dates: start: 20150417
  2. IMBRUVICA [Suspect]
     Active Substance: IBRUTINIB
     Indication: Chronic lymphocytic leukaemia
     Dosage: 280 MG DAILY?FIRST ADMIN DATE 2017
     Route: 048
     Dates: end: 20170606
  3. IMBRUVICA [Suspect]
     Active Substance: IBRUTINIB
     Indication: Chronic lymphocytic leukaemia
     Dosage: 420 MG DAILY
     Route: 048
     Dates: start: 20150417, end: 20170329
  4. IMBRUVICA [Suspect]
     Active Substance: IBRUTINIB
     Indication: Chronic lymphocytic leukaemia
     Dosage: FIRST ADMIN DATE 2017?140 MG DAILY
     Route: 048
     Dates: end: 20170706
  5. IMBRUVICA [Suspect]
     Active Substance: IBRUTINIB
     Indication: Chronic lymphocytic leukaemia
     Dosage: 280 MG DAILY
     Route: 048
     Dates: end: 20180409

REACTIONS (2)
  - Influenza [Unknown]
  - Blood test abnormal [Unknown]
